FAERS Safety Report 7470144-9 (Version None)
Quarter: 2011Q2

REPORT INFORMATION
  Report Type: 
  Country: None (occurrence: None)
  Receive Date: 20110510
  Receipt Date: 20110502
  Transmission Date: 20111010
  Serious: Yes (Other)
  Sender: FDA-Public Use
  Company Number: A0926622A

PATIENT
  Age: 69 Year
  Sex: Female

DRUGS (17)
  1. LIPITOR [Concomitant]
  2. METOPROLOL TARTRATE [Concomitant]
  3. DILTIAZEM [Concomitant]
  4. ADDERALL 10 [Concomitant]
  5. PRILOSEC [Concomitant]
  6. COENZYME Q10 [Concomitant]
  7. CENTRUM SILVER [Concomitant]
  8. VITAMIN D [Concomitant]
  9. TRAZODONE HCL [Concomitant]
  10. ATIVAN [Concomitant]
  11. LITHIUM CARBONATE [Concomitant]
  12. CALCIUM [Concomitant]
  13. AUGMENTIN [Suspect]
     Route: 065
  14. ACTONEL [Concomitant]
  15. UNKNOWN MEDICATION [Concomitant]
  16. LAMOTRIGINE [Suspect]
     Indication: DEPRESSION
     Dosage: 200MG PER DAY
     Route: 048
  17. VENLAFAXINE [Concomitant]

REACTIONS (4)
  - INSOMNIA [None]
  - OCULAR ICTERUS [None]
  - DRUG HYPERSENSITIVITY [None]
  - YELLOW SKIN [None]
